FAERS Safety Report 8790975 (Version 1)
Quarter: 2012Q4

REPORT INFORMATION
  Report Type: Spontaneous
  Country: US (occurrence: None)
  Receive Date: 20120907
  Receipt Date: 20120907
  Transmission Date: 20130627
  Serious: Yes (Other)
  Sender: FDA-Public Use
  Company Number: 2012-01307

PATIENT
  Age: 28 Year
  Sex: Female

DRUGS (4)
  1. TRAMADOL [Suspect]
     Indication: DRUG USE FOR UNKNOWN INDICATION
  2. ESCITALOPRAM [Concomitant]
  3. NAPROXEN [Concomitant]
  4. OMEPRAZOLE [Concomitant]

REACTIONS (6)
  - Toxicity to various agents [None]
  - Convulsion [None]
  - Drug screen false positive [None]
  - Blood glucose increased [None]
  - Tachycardia [None]
  - Agitation [None]
